FAERS Safety Report 8095512-6 (Version None)
Quarter: 2012Q1

REPORT INFORMATION
  Report Type: 
  Country: None (occurrence: None)
  Receive Date: 20120129
  Receipt Date: 20111216
  Transmission Date: 20120608
  Serious: No
  Sender: FDA-Public Use
  Company Number: US-ABBOTT-11P-163-0884365-00

PATIENT
  Age: 54 Year
  Sex: Female

DRUGS (4)
  1. LITHIUM CARBONATE [Concomitant]
     Indication: DEPRESSION
  2. PREDNISONE TAB [Concomitant]
     Indication: PRODUCT USED FOR UNKNOWN INDICATION
  3. HUMIRA [Suspect]
     Indication: CROHN'S DISEASE
     Dates: start: 20110915
  4. VICODIN ES [Concomitant]
     Indication: PAIN
     Dosage: ONE EVERY FOUR HOURS

REACTIONS (6)
  - ABDOMINAL DISTENSION [None]
  - PAIN [None]
  - FEELING ABNORMAL [None]
  - OPEN WOUND [None]
  - FLATULENCE [None]
  - ABDOMINAL PAIN UPPER [None]
